FAERS Safety Report 10139388 (Version 1)
Quarter: 2014Q2

REPORT INFORMATION
  Report Type: Spontaneous
  Country: US (occurrence: US)
  Receive Date: 20140429
  Receipt Date: 20140429
  Transmission Date: 20141212
  Serious: No
  Sender: FDA-Public Use
  Company Number: US-JNJFOC-20140411894

PATIENT
  Sex: Female
  Weight: 49.9 kg

DRUGS (4)
  1. DURAGESIC [Suspect]
     Indication: PRODUCT USED FOR UNKNOWN INDICATION
     Route: 062
     Dates: start: 1998
  2. WELLBUTRIN [Concomitant]
     Indication: DEPRESSION
     Route: 048
     Dates: start: 1998
  3. SERZONE [Concomitant]
     Indication: DEPRESSION
     Route: 065
     Dates: start: 1998
  4. METHOCARBAMOL [Concomitant]
     Indication: FIBROMYALGIA
     Route: 048
     Dates: start: 201308

REACTIONS (7)
  - Product quality issue [Unknown]
  - Drug dose omission [Unknown]
  - Product adhesion issue [Unknown]
  - Product adhesion issue [Unknown]
  - Product quality issue [Unknown]
  - Adverse event [Recovered/Resolved]
  - Wrong technique in drug usage process [Unknown]
